FAERS Safety Report 6398789-8 (Version None)
Quarter: 2009Q4

REPORT INFORMATION
  Report Type: 
  Country: None (occurrence: None)
  Receive Date: 20091013
  Receipt Date: 20091001
  Transmission Date: 20100525
  Serious: Yes (Hospitalization)
  Sender: FDA-Public Use
  Company Number: CA-PFIZER INC-2009277177

PATIENT
  Age: 27 Year

DRUGS (1)
  1. ZELDOX [Suspect]
     Dosage: 80 MG, 2X/DAY
     Dates: start: 20090601

REACTIONS (1)
  - DIABETIC COMA [None]
